FAERS Safety Report 17629417 (Version 1)
Quarter: 2020Q2

REPORT INFORMATION
  Report Type: Spontaneous
  Country: US (occurrence: US)
  Receive Date: 20200406
  Receipt Date: 20200406
  Transmission Date: 20200713
  Serious: No
  Sender: FDA-Public Use
  Company Number: US-MYLANLABS-2020M1030795

PATIENT
  Age: 19 Year
  Sex: Female
  Weight: 60 kg

DRUGS (2)
  1. NORETHINDRONE TABLETS, USP [Suspect]
     Active Substance: NORETHINDRONE
     Indication: MENSTRUAL CYCLE MANAGEMENT
  2. NORETHINDRONE TABLETS, USP [Suspect]
     Active Substance: NORETHINDRONE
     Indication: CONTRACEPTION
     Dosage: 3.5 MILLIGRAM, QD
     Route: 048
     Dates: start: 201906

REACTIONS (2)
  - Withdrawal bleed [Recovered/Resolved]
  - Amenorrhoea [Not Recovered/Not Resolved]

NARRATIVE: CASE EVENT DATE: 20190801
